FAERS Safety Report 15395018 (Version 1)
Quarter: 2018Q3

REPORT INFORMATION
  Report Type: Spontaneous
  Country: US (occurrence: US)
  Receive Date: 20180911
  Receipt Date: 20180911
  Transmission Date: 20181010
  Serious: Yes (Other)
  Sender: FDA-Public Use
  Company Number: None

PATIENT
  Age: 17 Year
  Sex: Male
  Weight: 82.55 kg

DRUGS (2)
  1. PALIPERIDONE. [Concomitant]
     Active Substance: PALIPERIDONE
  2. QUETIAPINE ER 300MG TABLETS [Suspect]
     Active Substance: QUETIAPINE

REACTIONS (4)
  - Product substitution issue [None]
  - Hallucination, auditory [None]
  - Hallucination, visual [None]
  - Anxiety [None]

NARRATIVE: CASE EVENT DATE: 20180906
